FAERS Safety Report 8795100 (Version 2)
Quarter: 2015Q1

REPORT INFORMATION
  Report Type: Report from Study
  Country: US (occurrence: US)
  Receive Date: 20120917
  Receipt Date: 20150304
  Transmission Date: 20150721
  Serious: Yes (Death)
  Sender: FDA-Public Use
  Company Number: US-ROCHE-1103465

PATIENT
  Sex: Female

DRUGS (23)
  1. ARANESP [Concomitant]
     Active Substance: DARBEPOETIN ALFA
     Route: 058
  2. TYLENOL [Concomitant]
     Active Substance: ACETAMINOPHEN
     Route: 065
  3. GEMZAR [Concomitant]
     Active Substance: GEMCITABINE HYDROCHLORIDE
     Route: 065
  4. BENADRYL [Concomitant]
     Active Substance: DIPHENHYDRAMINE HYDROCHLORIDE
     Route: 042
  5. ZOFRAN [Concomitant]
     Active Substance: ONDANSETRON HYDROCHLORIDE
     Dosage: PRN
     Route: 065
  6. BACTROBAN [Concomitant]
     Active Substance: MUPIROCIN\MUPIROCIN CALCIUM
     Route: 061
  7. GRANISETRON [Concomitant]
     Active Substance: GRANISETRON
     Dosage: PRN
     Route: 048
  8. BENADRYL [Concomitant]
     Active Substance: DIPHENHYDRAMINE HYDROCHLORIDE
     Route: 042
  9. PREVACID [Concomitant]
     Active Substance: LANSOPRAZOLE
     Route: 065
  10. TAXOTERE [Concomitant]
     Active Substance: DOCETAXEL
     Route: 042
  11. VITAMIN B12 [Concomitant]
     Active Substance: CYANOCOBALAMIN
     Route: 065
  12. ATIVAN [Concomitant]
     Active Substance: LORAZEPAM
     Route: 065
  13. DECADRON [Concomitant]
     Active Substance: DEXAMETHASONE
     Route: 065
  14. AVASTIN [Suspect]
     Active Substance: BEVACIZUMAB
     Indication: REPRODUCTIVE TRACT DISORDER
  15. TAXOTERE [Concomitant]
     Active Substance: DOCETAXEL
     Route: 042
  16. ZANTAC [Concomitant]
     Active Substance: RANITIDINE HYDROCHLORIDE
     Route: 065
  17. HEPARIN [Concomitant]
     Active Substance: HEPARIN SODIUM
     Route: 065
  18. GEMZAR [Concomitant]
     Active Substance: GEMCITABINE HYDROCHLORIDE
     Route: 065
  19. COLACE [Concomitant]
     Active Substance: DOCUSATE SODIUM
     Dosage: PRN
     Route: 065
  20. CIPROFLOXACIN. [Concomitant]
     Active Substance: CIPROFLOXACIN
     Route: 048
  21. AVASTIN [Suspect]
     Active Substance: BEVACIZUMAB
     Indication: OVARIAN CANCER
     Route: 042
     Dates: start: 20080808
  22. ANZEMET [Concomitant]
     Active Substance: DOLASETRON MESYLATE
     Route: 065
  23. ZOFRAN [Concomitant]
     Active Substance: ONDANSETRON HYDROCHLORIDE
     Dosage: PRN
     Route: 065

REACTIONS (14)
  - Death [Fatal]
  - Nausea [Recovering/Resolving]
  - Constipation [Unknown]
  - Dysphonia [Unknown]
  - Off label use [Unknown]
  - Fatigue [Unknown]
  - Dehydration [Unknown]
  - Depressed mood [Unknown]
  - Pruritus [Unknown]
  - Dysuria [Unknown]
  - Rash [Unknown]
  - Stomatitis [Unknown]
  - Erythema [Unknown]
  - Diarrhoea [Unknown]
